FAERS Safety Report 5385663-9 (Version None)
Quarter: 2007Q3

REPORT INFORMATION
  Report Type: 
  Country: None (occurrence: None)
  Receive Date: 20070712
  Receipt Date: 20070703
  Transmission Date: 20080115
  Serious: Yes (Other)
  Sender: FDA-Public Use
  Company Number: US-KINGPHARMUSA00001-K200700842

PATIENT

DRUGS (6)
  1. SEPTRA [Suspect]
     Dosage: UNK, BID
     Route: 048
  2. AMOXICILLIN TRIHYDRATE [Suspect]
     Dosage: 500 MG, TID
     Route: 048
  3. AZITHROMYCIN [Suspect]
  4. CLARITHROMYCIN [Suspect]
     Dosage: 500 MG, BID
  5. ERYTHROMYCIN [Suspect]
     Dosage: 333 MG, TID
  6. CEFTRIAXONE SODIUM [Suspect]

REACTIONS (9)
  - CONJUNCTIVITIS [None]
  - DEPRESSED LEVEL OF CONSCIOUSNESS [None]
  - DERMATITIS BULLOUS [None]
  - DYSPNOEA [None]
  - MUCOSAL ULCERATION [None]
  - PAIN [None]
  - PYREXIA [None]
  - RASH MACULO-PAPULAR [None]
  - SKIN EXFOLIATION [None]
